FAERS Safety Report 21559429 (Version 1)
Quarter: 2022Q4

REPORT INFORMATION
  Report Type: Other
  Country: None (occurrence: CN)
  Receive Date: 20221107
  Receipt Date: 20221107
  Transmission Date: 20230113
  Serious: Yes (Death, Hospitalization, Other)
  Sender: FDA-Public Use
  Company Number: CN-ASPIRO PHARMA LTD-2134577

PATIENT
  Age: 29 Year
  Sex: Female

DRUGS (4)
  1. ACETAMINOPHEN [Suspect]
     Active Substance: ACETAMINOPHEN
     Indication: Pyrexia
     Route: 048
  2. GLYCYRRHIZIN [Concomitant]
     Active Substance: GLYCYRRHIZIN
     Route: 065
  3. Polyenylphosphatidylcholine [Concomitant]
     Route: 065
  4. ADEMETIONINE [Concomitant]
     Active Substance: ADEMETIONINE
     Route: 048

REACTIONS (4)
  - Hepatic failure [Fatal]
  - Hepatic encephalopathy [Fatal]
  - Multiple organ dysfunction syndrome [Fatal]
  - Maternal exposure during pregnancy [Fatal]
